FAERS Safety Report 8349053-9 (Version None)
Quarter: 2012Q2

REPORT INFORMATION
  Report Type: 
  Country: None (occurrence: None)
  Receive Date: 20120510
  Receipt Date: 20120501
  Transmission Date: 20120825
  Serious: Yes (Other)
  Sender: FDA-Public Use
  Company Number: US-JNJFOC-20120503573

PATIENT
  Age: 60 Year
  Sex: Male

DRUGS (2)
  1. INVEGA [Suspect]
     Indication: DEPRESSION
     Route: 048
     Dates: start: 20090101, end: 20120101
  2. KLONOPIN [Suspect]
     Indication: DEPRESSION
     Route: 065

REACTIONS (2)
  - RENAL NEOPLASM [None]
  - PITUITARY TUMOUR [None]
